FAERS Safety Report 4638245-8 (Version None)
Quarter: 2005Q2

REPORT INFORMATION
  Report Type: 
  Country: None (occurrence: None)
  Receive Date: 20050418
  Receipt Date: 20050325
  Transmission Date: 20051028
  Serious: Yes (Death, Other)
  Sender: FDA-Public Use
  Company Number: USA050391994

PATIENT
  Age: 56 Year
  Sex: Female

DRUGS (4)
  1. XIGRIS [Suspect]
     Indication: SEPSIS
     Dosage: 24 UG/KG/HR
     Dates: start: 20050207, end: 20050211
  2. DOPAMINE [Concomitant]
  3. LEVOPHED [Concomitant]
  4. NEOSYNEPHRINE (PHENYLEPHRINE HYDROCHLORIDE) [Concomitant]

REACTIONS (2)
  - MOUTH HAEMORRHAGE [None]
  - MULTI-ORGAN FAILURE [None]
